FAERS Safety Report 6960181-2 (Version None)
Quarter: 2010Q3

REPORT INFORMATION
  Report Type: 
  Country: None (occurrence: None)
  Receive Date: 20100901
  Receipt Date: 20100827
  Transmission Date: 20110219
  Serious: Yes (Hospitalization, Other)
  Sender: FDA-Public Use
  Company Number: DE-SANOFI-AVENTIS-2010SA051020

PATIENT
  Age: 60 Year
  Sex: Female
  Weight: 90 kg

DRUGS (4)
  1. DOCETAXEL [Suspect]
     Indication: BREAST CANCER
     Route: 041
     Dates: start: 20100506, end: 20100506
  2. DOCETAXEL [Suspect]
     Route: 041
     Dates: start: 20100819, end: 20100819
  3. BEVACIZUMAB [Suspect]
     Indication: BREAST CANCER
     Route: 041
     Dates: start: 20100819, end: 20100819
  4. BEVACIZUMAB [Suspect]
     Route: 041
     Dates: start: 20100506, end: 20100506

REACTIONS (2)
  - FEBRILE NEUTROPENIA [None]
  - URINARY RETENTION [None]
